FAERS Safety Report 9958139 (Version 1)
Quarter: 2014Q1

REPORT INFORMATION
  Report Type: Report from Study
  Country: US (occurrence: US)
  Receive Date: 20140304
  Receipt Date: 20140304
  Transmission Date: 20141002
  Serious: No
  Sender: FDA-Public Use
  Company Number: US-ABBVIE-13P-163-1091625-00

PATIENT
  Age: 26 Year
  Sex: Female

DRUGS (7)
  1. HUMIRA [Suspect]
     Indication: PSORIATIC ARTHROPATHY
     Dosage: STARTER DOSE
     Dates: start: 20130506
  2. INDOCIN [Concomitant]
     Indication: ANTIINFLAMMATORY THERAPY
  3. TRAMADOL [Concomitant]
     Indication: PAIN
     Dosage: 50 MG 1 OR 2 TABLETS AS NEEDED
  4. CELEXA [Concomitant]
     Indication: DEPRESSION
     Dosage: 40MG AT HOUR OF SLEEP
  5. RISPERIDONE [Concomitant]
     Indication: DISTURBANCE IN ATTENTION
     Dosage: 2MG AT HOUR OF SLEEP
  6. XANAX [Concomitant]
     Indication: ANXIETY
     Dosage: AS NEEDED
  7. TRI PREIFEM [Concomitant]
     Indication: CONTRACEPTION

REACTIONS (4)
  - Sensation of blood flow [Recovered/Resolved]
  - Injection site pain [Recovered/Resolved]
  - Arthralgia [Unknown]
  - Pain in extremity [Recovered/Resolved]
